FAERS Safety Report 15732237 (Version 2)
Quarter: 2019Q1

REPORT INFORMATION
  Report Type: Report from Study
  Country: RO (occurrence: RO)
  Receive Date: 20181217
  Receipt Date: 20190116
  Transmission Date: 20190417
  Serious: Yes (Hospitalization, Other)
  Sender: FDA-Public Use
  Company Number: RO-GILEAD-2018-0380525

PATIENT
  Age: 66 Year
  Sex: Female

DRUGS (3)
  1. LEDIPASVIR/SOFOSBUVIR [Suspect]
     Active Substance: LEDIPASVIR\SOFOSBUVIR
     Indication: CHRONIC HEPATITIS C
     Dosage: 1 DF, QD
     Route: 048
     Dates: start: 20181017, end: 20190107
  2. CONCOR [Concomitant]
     Active Substance: BISOPROLOL FUMARATE
     Indication: CARDIAC DISORDER
  3. CORLENTOR [Concomitant]
     Active Substance: IVABRADINE HYDROCHLORIDE
     Indication: CARDIAC DISORDER

REACTIONS (3)
  - Vomiting [Recovered/Resolved]
  - Tremor [Not Recovered/Not Resolved]
  - Syncope [Not Recovered/Not Resolved]

NARRATIVE: CASE EVENT DATE: 2018
